FAERS Safety Report 13491297 (Version 2)
Quarter: 2017Q2

REPORT INFORMATION
  Report Type: Report from Study
  Country: US (occurrence: US)
  Receive Date: 20170427
  Receipt Date: 20170508
  Transmission Date: 20170830
  Serious: Yes (Hospitalization)
  Sender: FDA-Public Use
  Company Number: US-ASTRAZENECA-2016SE26730

PATIENT
  Age: 627 Day
  Sex: Male
  Weight: 10.2 kg

DRUGS (26)
  1. SYNAGIS [Suspect]
     Active Substance: PALIVIZUMAB
     Indication: ANTIVIRAL PROPHYLAXIS
     Dosage: LAST DOSE WAS 1.55 MG
     Route: 030
     Dates: start: 20161130
  2. SYNAGIS [Suspect]
     Active Substance: PALIVIZUMAB
     Indication: ANTIVIRAL PROPHYLAXIS
     Route: 030
  3. DIGOXIN. [Concomitant]
     Active Substance: DIGOXIN
     Dosage: 125.0UG UNKNOWN
  4. LANOXIN [Concomitant]
     Active Substance: DIGOXIN
  5. ASPIRIN. [Concomitant]
     Active Substance: ASPIRIN
     Route: 048
  6. SILDENAFIL. [Concomitant]
     Active Substance: SILDENAFIL
  7. SYNAGIS [Suspect]
     Active Substance: PALIVIZUMAB
     Indication: ANTIVIRAL PROPHYLAXIS
     Route: 030
     Dates: start: 20170228, end: 20170228
  8. SPIRONOLACTONE. [Concomitant]
     Active Substance: SPIRONOLACTONE
     Route: 065
  9. APRESOLINE HYDROCHLORIDE [Concomitant]
     Active Substance: HYDRALAZINE HYDROCHLORIDE
     Dosage: 10.0MG UNKNOWN
     Route: 048
  10. SPIRONOLACTONE. [Concomitant]
     Active Substance: SPIRONOLACTONE
  11. SYNAGIS [Suspect]
     Active Substance: PALIVIZUMAB
     Indication: ANTIVIRAL PROPHYLAXIS
     Route: 030
  12. REVATIO [Concomitant]
     Active Substance: SILDENAFIL CITRATE
     Route: 048
  13. ZANTAC [Concomitant]
     Active Substance: RANITIDINE HYDROCHLORIDE
     Route: 048
  14. PEDIASURE ENTERAL [Concomitant]
  15. OMEPRAZOLE. [Suspect]
     Active Substance: OMEPRAZOLE
     Dosage: 3.5ML AS REQUIRED
     Route: 065
  16. ENALAPRIL [Concomitant]
     Active Substance: ENALAPRIL
     Dosage: 10.0MG UNKNOWN
     Route: 065
  17. ZITHROMAX [Concomitant]
     Active Substance: AZITHROMYCIN DIHYDRATE
     Indication: PNEUMONIA
     Dosage: 100 MG/5 ML
  18. SYNAGIS [Suspect]
     Active Substance: PALIVIZUMAB
     Indication: ANTIVIRAL PROPHYLAXIS
     Dosage: PATIENT PREVIOUSLY EXPOSED TO SYNAGIS: 20-NOV-2015, 21 DEC-2015, 18-JAN-2016, 15-FEB-2016, 30-NOV...
     Route: 030
  19. PROCRIT [Concomitant]
     Active Substance: ERYTHROPOIETIN
     Route: 058
  20. LASIX [Concomitant]
     Active Substance: FUROSEMIDE
     Route: 065
  21. REGLAN [Concomitant]
     Active Substance: METOCLOPRAMIDE HYDROCHLORIDE
     Dosage: 0.8ML UNKNOWN
     Route: 065
  22. CYPROHEPTADINE. [Concomitant]
     Active Substance: CYPROHEPTADINE
     Route: 048
  23. OMEPRAZOLE. [Suspect]
     Active Substance: OMEPRAZOLE
     Dosage: 10.0MG AS REQUIRED
     Route: 065
  24. REGLAN [Concomitant]
     Active Substance: METOCLOPRAMIDE HYDROCHLORIDE
     Dosage: 10.0MG UNKNOWN
     Route: 065
  25. ISORDIL [Concomitant]
     Active Substance: ISOSORBIDE DINITRATE
     Dosage: 5.0MG UNKNOWN
     Route: 065
  26. OMNICEF [Concomitant]
     Active Substance: CEFDINIR

REACTIONS (3)
  - Acute respiratory distress syndrome [Recovered/Resolved]
  - Respiratory syncytial virus infection [Recovered/Resolved]
  - Pneumonia adenoviral [Unknown]

NARRATIVE: CASE EVENT DATE: 20170320
